FAERS Safety Report 7934178-X (Version None)
Quarter: 2011Q4

REPORT INFORMATION
  Report Type: 
  Country: None (occurrence: None)
  Receive Date: 20111122
  Receipt Date: 20111115
  Transmission Date: 20120403
  Serious: Yes (Hospitalization)
  Sender: FDA-Public Use
  Company Number: US-JNJFOC-20111107975

PATIENT
  Sex: Male
  Weight: 47 kg

DRUGS (8)
  1. ANTIBIOTICS [Concomitant]
     Indication: INFLAMMATORY BOWEL DISEASE
  2. FOLIC ACID [Concomitant]
  3. ALLEGRA [Concomitant]
  4. LACTOBACILLUS [Concomitant]
  5. OMEPRAZOLE [Concomitant]
  6. SINGULAIR [Concomitant]
  7. REMICADE [Suspect]
     Indication: COLITIS ULCERATIVE
     Route: 042
     Dates: start: 20100722, end: 20100916
  8. IRON [Concomitant]

REACTIONS (1)
  - PROCTALGIA [None]
